FAERS Safety Report 4948995-1 (Version None)
Quarter: 2006Q1

REPORT INFORMATION
  Report Type: 
  Country: None (occurrence: None)
  Receive Date: 20060321
  Receipt Date: 20060314
  Transmission Date: 20060701
  Serious: Yes (Hospitalization)
  Sender: FDA-Public Use
  Company Number: IT-AVENTIS-200612570GDDC

PATIENT
  Age: 49 Year
  Sex: Female

DRUGS (8)
  1. RIFADIN [Suspect]
     Indication: PULMONARY TUBERCULOSIS
     Route: 048
     Dates: start: 20060226
  2. RIFADIN [Suspect]
     Indication: TUBERCULOSIS
     Route: 048
     Dates: start: 20060226
  3. ISONIAZID [Suspect]
     Indication: PULMONARY TUBERCULOSIS
     Route: 042
     Dates: start: 20060221, end: 20060221
  4. ISONIAZID [Suspect]
     Route: 048
     Dates: start: 20060223
  5. ISONIAZID [Suspect]
     Indication: TUBERCULOSIS
     Route: 042
     Dates: start: 20060221, end: 20060221
  6. ISONIAZID [Suspect]
     Route: 048
     Dates: start: 20060223
  7. ETHAMBUTOL [Suspect]
     Indication: PULMONARY TUBERCULOSIS
     Route: 042
     Dates: start: 20060221, end: 20060226
  8. ETHAMBUTOL [Suspect]
     Indication: TUBERCULOSIS
     Route: 042
     Dates: start: 20060221, end: 20060226

REACTIONS (4)
  - CHILLS [None]
  - HYPERSENSITIVITY [None]
  - PYREXIA [None]
  - SYNCOPE [None]
